FAERS Safety Report 14952171 (Version 3)
Quarter: 2018Q4

REPORT INFORMATION
  Report Type: Report from Study
  Country: DE (occurrence: DE)
  Receive Date: 20180530
  Receipt Date: 20181228
  Transmission Date: 20190204
  Serious: Yes (Hospitalization, Other)
  Sender: FDA-Public Use
  Company Number: DE-SHIRE-DE201728817

PATIENT

DRUGS (27)
  1. DIPROSIS [Concomitant]
     Indication: ECZEMA
  2. CLEXANE [Concomitant]
     Active Substance: ENOXAPARIN SODIUM
     Indication: PULMONARY VEIN OCCLUSION
  3. PANTOPRAZOL [Concomitant]
     Active Substance: PANTOPRAZOLE SODIUM
     Indication: GASTRITIS PROPHYLAXIS
  4. PREDNISOLONE. [Concomitant]
     Active Substance: PREDNISOLONE
     Indication: RESPIRATORY FAILURE
  5. CLARITHROMYCIN. [Concomitant]
     Active Substance: CLARITHROMYCIN
     Indication: BRONCHITIS
  6. CEFPODOXIME [Concomitant]
     Active Substance: CEFPODOXIME
     Indication: HAEMOPTYSIS
  7. AZITHROMYCIN ANHYDROUS. [Concomitant]
     Active Substance: AZITHROMYCIN ANHYDROUS
     Indication: BRONCHITIS
  8. NACL [Concomitant]
     Active Substance: SODIUM CHLORIDE
     Indication: BRONCHITIS
  9. ALENDRONATE [Concomitant]
     Active Substance: ALENDRONATE SODIUM
     Indication: OSTEOPOROSIS PROPHYLAXIS
  10. APIXABAN [Concomitant]
     Active Substance: APIXABAN
     Indication: PULMONARY VEIN OCCLUSION
  11. ELIQUIS [Concomitant]
     Active Substance: APIXABAN
     Indication: THROMBOSIS
  12. DESOGESTREL [Concomitant]
     Active Substance: DESOGESTREL
     Indication: ANOVULATORY CYCLE
  13. PREDNISOLONE. [Concomitant]
     Active Substance: PREDNISOLONE
     Indication: HAEMOPTYSIS
  14. SYMBICORT [Concomitant]
     Active Substance: BUDESONIDE\FORMOTEROL FUMARATE DIHYDRATE
     Indication: BRONCHITIS
  15. CEFEPIM [Concomitant]
     Active Substance: CEFEPIME HYDROCHLORIDE
     Indication: PNEUMONIA
  16. HUMAN IMMUNOGLOBULIN; HYALURONIDASE [Suspect]
     Active Substance: HUMAN IMMUNOGLOBULIN G\HYALURONIDASE RECOMBINANT HUMAN
     Dosage: 200 ML RHUPH20, 1X/2WKS
     Route: 065
     Dates: start: 20160725
  17. CLARITHROMYCIN. [Concomitant]
     Active Substance: CLARITHROMYCIN
     Indication: RESPIRATORY TRACT INFECTION
  18. SALBUTAMOL [Concomitant]
     Active Substance: ALBUTEROL
     Indication: BRONCHITIS
  19. ROXITHROMYCIN [Concomitant]
     Active Substance: ROXITHROMYCIN
     Indication: PNEUMONIA
  20. PREDNISOLONE. [Concomitant]
     Active Substance: PREDNISOLONE
     Indication: PULMONARY GRANULOMA
     Dosage: UNK
     Dates: start: 20170627, end: 20170627
  21. DEKRISTOL [Concomitant]
     Active Substance: CHOLECALCIFEROL
     Indication: OSTEOPOROSIS PROPHYLAXIS
  22. ELIQUIS [Concomitant]
     Active Substance: APIXABAN
     Indication: PROPHYLAXIS
  23. HUMAN IMMUNOGLOBULIN; HYALURONIDASE [Suspect]
     Active Substance: HUMAN IMMUNOGLOBULIN G\HYALURONIDASE RECOMBINANT HUMAN
     Indication: IMMUNODEFICIENCY COMMON VARIABLE
     Dosage: 10 ML, 1X/2WKS
     Route: 065
     Dates: start: 20160627, end: 20170906
  24. AZATHIOPRIN [Concomitant]
     Active Substance: AZATHIOPRINE
     Indication: PULMONARY GRANULOMA
  25. FRAGMIN P FORTE [Concomitant]
     Active Substance: DALTEPARIN SODIUM
     Indication: PULMONARY VEIN OCCLUSION
  26. CEFUROXIN [Concomitant]
     Active Substance: CEFUROXIME
     Indication: BRONCHITIS
  27. MUTAFLOR [Concomitant]
     Active Substance: ESCHERICHIA COLI
     Indication: DYSBACTERIOSIS

REACTIONS (3)
  - Cardiac failure [Not Recovered/Not Resolved]
  - Oesophagitis [Recovered/Resolved]
  - Haemoptysis [Recovered/Resolved]

NARRATIVE: CASE EVENT DATE: 20160823
